FAERS Safety Report 9174318 (Version 2)
Quarter: 2013Q2

REPORT INFORMATION
  Report Type: Report from Study
  Country: US (occurrence: US)
  Receive Date: 20130320
  Receipt Date: 20130410
  Transmission Date: 20140414
  Serious: Yes (Hospitalization)
  Sender: FDA-Public Use
  Company Number: US-NAPPMUNDI-USA-2013-0099953

PATIENT
  Sex: Male
  Weight: 86.17 kg

DRUGS (2)
  1. OXYCONTIN (NDA 22-272) [Suspect]
     Indication: PRODUCT USED FOR UNKNOWN INDICATION
     Dosage: 160 MG, BID
  2. AMOXIL /00249601/ [Suspect]
     Indication: STREPTOCOCCAL INFECTION
     Dosage: 1000 MG, BID
     Route: 048
     Dates: start: 20130305, end: 20130315

REACTIONS (1)
  - Pharyngitis streptococcal [Unknown]
